FAERS Safety Report 4340745-5 (Version None)
Quarter: 2004Q2

REPORT INFORMATION
  Report Type: 
  Country: None (occurrence: None)
  Receive Date: 20040414
  Receipt Date: 20040203
  Transmission Date: 20050107
  Serious: Yes (Death)
  Sender: FDA-Public Use
  Company Number: YITD20040009

PATIENT
  Age: 77 Year
  Sex: Male

DRUGS (10)
  1. MILRINONE LACTATE [Suspect]
     Indication: CARDIAC FAILURE
     Dosage: 40 MG CONTINUOUS/20 MG CONTINUOUS OR
     Route: 048
  2. MILRINONE LACTATE [Suspect]
     Indication: HYPERTENSION
     Dosage: 40 MG CONTINUOUS/20 MG CONTINUOUS OR
     Route: 048
  3. MILRINONE LACTATE [Suspect]
     Indication: CARDIAC FAILURE
     Dosage: 40 MG CONTINUOUS/20 MG CONTINUOUS OR
     Route: 048
  4. MILRINONE LACTATE [Suspect]
     Indication: HYPERTENSION
     Dosage: 40 MG CONTINUOUS/20 MG CONTINUOUS OR
     Route: 048
  5. CARPERITIDE [Concomitant]
  6. DIGOXIN [Concomitant]
  7. FUROSEMIDE [Concomitant]
  8. POTASSIUM CANRENOATE [Concomitant]
  9. TIENAM (IMIPENEM/CILASTATIN) [Concomitant]
  10. MEROPENEM [Concomitant]

REACTIONS (5)
  - CARDIAC ARREST [None]
  - PLATELET COUNT DECREASED [None]
  - PULMONARY ALVEOLAR HAEMORRHAGE [None]
  - PULMONARY CONGESTION [None]
  - RESPIRATORY ARREST [None]
